FAERS Safety Report 6565630-X (Version None)
Quarter: 2010Q1

REPORT INFORMATION
  Report Type: 
  Country: None (occurrence: None)
  Receive Date: 20100201
  Receipt Date: 20100118
  Transmission Date: 20100710
  Serious: Yes (Hospitalization, Other)
  Sender: FDA-Public Use
  Company Number: PHHY2010US04712

PATIENT
  Age: 46 Year
  Sex: Female

DRUGS (7)
  1. PAMIDRONATE DISODIUM [Suspect]
  2. GEMCITABINE [Suspect]
     Indication: BREAST CANCER METASTATIC
     Dosage: 1000 MG/M2 ONCE WEEKLY FOR 21-DAY CYCLE
  3. CARBOPLATIN [Concomitant]
     Indication: BREAST CANCER METASTATIC
  4. PACLITAXEL [Concomitant]
     Indication: BREAST CANCER METASTATIC
  5. CAPECITABINE [Concomitant]
     Indication: BREAST CANCER METASTATIC
  6. VINORELBINE [Concomitant]
     Indication: BREAST CANCER METASTATIC
  7. DOXORUBICIN HCL [Concomitant]
     Indication: BREAST CANCER METASTATIC
     Dosage: UNK

REACTIONS (10)
  - BLOOD LACTATE DEHYDROGENASE INCREASED [None]
  - HAEMOLYTIC ANAEMIA [None]
  - HAEMOLYTIC URAEMIC SYNDROME [None]
  - HYPERTENSION [None]
  - OEDEMA PERIPHERAL [None]
  - PROTEINURIA [None]
  - RENAL FAILURE [None]
  - RENAL IMPAIRMENT [None]
  - THROMBOCYTOPENIA [None]
  - THROMBOTIC MICROANGIOPATHY [None]
